FAERS Safety Report 9896441 (Version 1)
Quarter: 2014Q1

REPORT INFORMATION
  Report Type: Spontaneous
  Country: US (occurrence: US)
  Receive Date: 20140213
  Receipt Date: 20140213
  Transmission Date: 20141002
  Serious: No
  Sender: FDA-Public Use
  Company Number: US-BRISTOL-MYERS SQUIBB COMPANY-17443052

PATIENT
  Age: 78 Year
  Sex: Female
  Weight: 59.41 kg

DRUGS (4)
  1. ABATACEPT SUBQ INJECTION 125MG/ML [Suspect]
     Indication: RHEUMATOID ARTHRITIS
     Dosage: LAST INJECTION:04MAR2013?PRESCRIPTION #: 224315612427
     Route: 058
     Dates: start: 20130121
  2. PROCRIT [Concomitant]
  3. IRON [Concomitant]
     Dosage: PROCRIT SHOT
  4. IRON [Concomitant]
     Dosage: IRON PILLS

REACTIONS (2)
  - Pain in extremity [Unknown]
  - Product quality issue [Unknown]
